FAERS Safety Report 14213675 (Version 1)
Quarter: 2017Q4

REPORT INFORMATION
  Report Type: Spontaneous
  Country: US (occurrence: US)
  Receive Date: 20171122
  Receipt Date: 20171122
  Transmission Date: 20180321
  Serious: No
  Sender: FDA-Public Use
  Company Number: US-ORION CORPORATION ORION PHARMA-ENTC2017-0116

PATIENT
  Sex: Male

DRUGS (3)
  1. NEUPRO [Concomitant]
     Active Substance: ROTIGOTINE
     Route: 065
  2. STALEVO [Suspect]
     Active Substance: CARBIDOPA\ENTACAPONE\LEVODOPA
     Dosage: STRENGTH: 50/12.5/200 MG
     Route: 065
  3. PAXIL [Concomitant]
     Active Substance: PAROXETINE HYDROCHLORIDE
     Route: 065

REACTIONS (5)
  - Tremor [Unknown]
  - Psychomotor hyperactivity [Unknown]
  - Nervousness [Unknown]
  - Balance disorder [Unknown]
  - Feeling abnormal [Unknown]
